FAERS Safety Report 9462428 (Version 2)
Quarter: 2020Q2

REPORT INFORMATION
  Report Type: Spontaneous
  Country: GB (occurrence: GB)
  Receive Date: 20130816
  Receipt Date: 20200525
  Transmission Date: 20200714
  Serious: Yes (Disabling)
  Sender: FDA-Public Use
  Company Number: PHHY2013GB085312

PATIENT
  Age: 30 Year
  Sex: Female
  Weight: 81 kg

DRUGS (11)
  1. LOPERAMIDE [Concomitant]
     Active Substance: LOPERAMIDE
     Indication: PRODUCT USED FOR UNKNOWN INDICATION
     Dosage: UNK
     Route: 065
  2. DEPIXOL (FLUPENTIXOL DECANOATE) [Suspect]
     Active Substance: FLUPENTIXOL DECANOATE
     Dosage: 120 MG, UNK
     Route: 051
     Dates: start: 2007
  3. ZOLPIDEM [Concomitant]
     Active Substance: ZOLPIDEM TARTRATE
     Indication: PRODUCT USED FOR UNKNOWN INDICATION
     Dosage: UNK
     Route: 065
  4. CODEINE [Concomitant]
     Active Substance: CODEINE
     Indication: PRODUCT USED FOR UNKNOWN INDICATION
     Dosage: UNK
     Route: 065
  5. ARIPIPRAZOLE. [Suspect]
     Active Substance: ARIPIPRAZOLE
     Dosage: UNK
     Route: 048
     Dates: start: 2008
  6. ARIPIPRAZOLE. [Suspect]
     Active Substance: ARIPIPRAZOLE
     Indication: PRODUCT USED FOR UNKNOWN INDICATION
     Dosage: UNK
     Route: 048
     Dates: start: 2007
  7. DEPIXOL (FLUPENTIXOL DECANOATE) [Suspect]
     Active Substance: FLUPENTIXOL DECANOATE
     Indication: PRODUCT USED FOR UNKNOWN INDICATION
     Dosage: 120 MG, UNK
     Route: 051
     Dates: start: 2004
  8. LORATADINE. [Concomitant]
     Active Substance: LORATADINE
     Indication: PRODUCT USED FOR UNKNOWN INDICATION
     Dosage: UNK
     Route: 065
  9. DIAZEPAM. [Concomitant]
     Active Substance: DIAZEPAM
     Indication: PRODUCT USED FOR UNKNOWN INDICATION
     Dosage: UNK
     Route: 065
  10. QUETIAPINE. [Suspect]
     Active Substance: QUETIAPINE
     Indication: PRODUCT USED FOR UNKNOWN INDICATION
     Dosage: 300 MG, UNKNOWN
     Route: 048
     Dates: start: 20110101
  11. PENTASA [Concomitant]
     Active Substance: MESALAMINE
     Indication: PRODUCT USED FOR UNKNOWN INDICATION
     Dosage: UNK
     Route: 065

REACTIONS (38)
  - Confusional state [Not Recovered/Not Resolved]
  - Bradyphrenia [Not Recovered/Not Resolved]
  - Tinnitus [Not Recovered/Not Resolved]
  - Flashback [Unknown]
  - Aphasia [Not Recovered/Not Resolved]
  - Anal abscess [Recovered/Resolved with Sequelae]
  - Visual acuity reduced [Not Recovered/Not Resolved]
  - Impaired self-care [Not Recovered/Not Resolved]
  - Self esteem decreased [Not Recovered/Not Resolved]
  - Head circumference abnormal [Not Recovered/Not Resolved]
  - Brain injury [Unknown]
  - Nightmare [Not Recovered/Not Resolved]
  - Paralysis [Unknown]
  - Cerebrovascular accident [Not Recovered/Not Resolved]
  - Hyporeflexia [Not Recovered/Not Resolved]
  - Hot flush [Not Recovered/Not Resolved]
  - Obesity [Not Recovered/Not Resolved]
  - Screaming [Unknown]
  - Burning sensation [Not Recovered/Not Resolved]
  - Mental impairment [Unknown]
  - Injury [Unknown]
  - Disturbance in attention [Not Recovered/Not Resolved]
  - Depressed mood [Not Recovered/Not Resolved]
  - Anger [Not Recovered/Not Resolved]
  - Crying [Not Recovered/Not Resolved]
  - Sense of oppression [Not Recovered/Not Resolved]
  - Insomnia [Unknown]
  - Head discomfort [Not Recovered/Not Resolved]
  - Amnesia [Not Recovered/Not Resolved]
  - Coordination abnormal [Not Recovered/Not Resolved]
  - Intellectual disability [Not Recovered/Not Resolved]
  - Depression [Not Recovered/Not Resolved]
  - Eye irritation [Not Recovered/Not Resolved]
  - Agitation [Not Recovered/Not Resolved]
  - Pain [Unknown]
  - Logorrhoea [Unknown]
  - Emotional disorder [Unknown]
  - Tremor [Not Recovered/Not Resolved]

NARRATIVE: CASE EVENT DATE: 1998
